FAERS Safety Report 18348885 (Version 5)
Quarter: 2020Q4

REPORT INFORMATION
  Report Type: Report from Study
  Country: JP (occurrence: JP)
  Receive Date: 20201006
  Receipt Date: 20201103
  Transmission Date: 20210114
  Serious: Yes (Hospitalization)
  Sender: FDA-Public Use
  Company Number: JP-EISAI MEDICAL RESEARCH-EC-2020-081210

PATIENT
  Age: 74 Year
  Sex: Male
  Weight: 47 kg

DRUGS (12)
  1. PEMBROLIZUMAB. [Suspect]
     Active Substance: PEMBROLIZUMAB
     Route: 041
     Dates: start: 20200908, end: 20200908
  2. CELECOX [Concomitant]
     Active Substance: CELECOXIB
     Dates: start: 20200819
  3. MAGNESIUM OXIDE. [Concomitant]
     Active Substance: MAGNESIUM OXIDE
     Dates: start: 20200901, end: 20200923
  4. PEMBROLIZUMAB. [Suspect]
     Active Substance: PEMBROLIZUMAB
     Indication: SQUAMOUS CELL CARCINOMA OF HEAD AND NECK
     Route: 041
     Dates: start: 20200728, end: 20200819
  5. LENVATINIB [Suspect]
     Active Substance: LENVATINIB
     Route: 048
     Dates: start: 20200916, end: 20200923
  6. PEMBROLIZUMAB. [Suspect]
     Active Substance: PEMBROLIZUMAB
     Route: 041
     Dates: start: 20201013
  7. LENVATINIB [Suspect]
     Active Substance: LENVATINIB
     Indication: SQUAMOUS CELL CARCINOMA OF HEAD AND NECK
     Dosage: 20 MG, FLUCTUATED DOSAGE
     Route: 048
     Dates: start: 20200728, end: 20200915
  8. LENVATINIB [Suspect]
     Active Substance: LENVATINIB
     Route: 048
     Dates: start: 20201013
  9. THYRADIN-S [Concomitant]
     Active Substance: LEVOTHYROXINE
     Dates: start: 20200721
  10. HACHIAZULE [Concomitant]
     Route: 061
     Dates: start: 20200821
  11. CALONAL [Concomitant]
     Active Substance: ACETAMINOPHEN
     Dates: start: 20200901
  12. LOXOPROFEN NA PFIZER [Concomitant]
     Dates: start: 20200728

REACTIONS (1)
  - Blood urea increased [Recovered/Resolved]

NARRATIVE: CASE EVENT DATE: 20200923
